FAERS Safety Report 9973212 (Version 2)
Quarter: 2014Q1

REPORT INFORMATION
  Report Type: Report from Study
  Country: US (occurrence: US)
  Receive Date: 20140306
  Receipt Date: 20140306
  Transmission Date: 20141002
  Serious: No
  Sender: FDA-Public Use
  Company Number: US-ABBVIE-13P-163-1142623-00

PATIENT
  Age: 24 Year
  Sex: Male

DRUGS (3)
  1. HUMIRA [Suspect]
     Indication: COLITIS ULCERATIVE
     Dosage: DAY 1
     Dates: start: 20130822, end: 20130822
  2. HUMIRA [Suspect]
     Dosage: DAY 15
     Dates: start: 20130905, end: 20130905
  3. HUMIRA [Suspect]

REACTIONS (8)
  - Fatigue [Not Recovered/Not Resolved]
  - Dizziness [Unknown]
  - Gastric disorder [Unknown]
  - Rectal haemorrhage [Not Recovered/Not Resolved]
  - Pruritus [Not Recovered/Not Resolved]
  - Dyspnoea [Not Recovered/Not Resolved]
  - Abdominal pain upper [Not Recovered/Not Resolved]
  - Chest discomfort [Unknown]
